FAERS Safety Report 9053771 (Version 1)
Quarter: 2013Q1

REPORT INFORMATION
  Report Type: Spontaneous
  Country: IT (occurrence: IT)
  Receive Date: 20130207
  Receipt Date: 20130207
  Transmission Date: 20140127
  Serious: Yes (Hospitalization, Other)
  Sender: FDA-Public Use
  Company Number: IT-PFIZER INC-2013047325

PATIENT
  Age: 64 Year
  Sex: Male

DRUGS (4)
  1. METHYLPREDNISOLONE [Suspect]
     Indication: STEROID THERAPY
     Dosage: 1 MG/KG/DAY
     Route: 042
  2. METHYLPREDNISOLONE [Suspect]
     Indication: COLITIS ULCERATIVE
  3. AZATHIOPRINE [Suspect]
     Indication: COLITIS ULCERATIVE
     Dosage: 0.85 MG/KG/DAY
  4. CLOPIDOGREL [Concomitant]
     Indication: ANTIPLATELET THERAPY
     Dosage: 75 MG/DAY

REACTIONS (7)
  - Cytomegalovirus infection [Recovered/Resolved]
  - Diabetes mellitus [Unknown]
  - Diarrhoea haemorrhagic [Unknown]
  - Abdominal pain [Recovered/Resolved]
  - Asthenia [Unknown]
  - Pancytopenia [Unknown]
  - Drug ineffective [Unknown]
